FAERS Safety Report 20541797 (Version 1)
Quarter: 2022Q1

REPORT INFORMATION
  Report Type: Spontaneous
  Country: CN (occurrence: None)
  Receive Date: 20220302
  Receipt Date: 20220302
  Transmission Date: 20220423
  Serious: Yes (Life-Threatening, Other)
  Sender: FDA-Public Use
  Company Number: 2022A086367

PATIENT
  Age: 27394 Day
  Sex: Male

DRUGS (3)
  1. OSIMERTINIB MESYLATE [Suspect]
     Active Substance: OSIMERTINIB MESYLATE
     Indication: Lung carcinoma cell type unspecified stage 0
     Route: 048
     Dates: start: 20220101, end: 20220213
  2. LUCOGEN [Concomitant]
     Dosage: 2 TABLETS, TID
     Route: 065
  3. HUMAN THROMBOPOIETIN [Concomitant]
     Dosage: 15000U, SUBCUTANEOUSLY, QD
     Route: 058

REACTIONS (5)
  - Platelet count decreased [Not Recovered/Not Resolved]
  - Muscular weakness [Unknown]
  - Gait disturbance [Unknown]
  - Dizziness [Recovering/Resolving]
  - Fatigue [Recovering/Resolving]

NARRATIVE: CASE EVENT DATE: 20220213
